FAERS Safety Report 4555389-X (Version None)
Quarter: 2005Q1

REPORT INFORMATION
  Report Type: 
  Country: None (occurrence: None)
  Receive Date: 20050118
  Receipt Date: 20050118
  Transmission Date: 20050727
  Serious: Yes (Hospitalization)
  Sender: FDA-Public Use
  Company Number: None

PATIENT
  Age: 54 Year
  Sex: Male

DRUGS (6)
  1. CHLORPROMAZINE [Suspect]
     Indication: HICCUPS
     Dosage: 25 MG PO QD PRN HICCUP
     Route: 048
     Dates: start: 20041022, end: 20041106
  2. COZAAR [Concomitant]
  3. CALCUIM CARBONATE [Concomitant]
  4. DILTIAZEM [Concomitant]
  5. ALDACTONE [Concomitant]
  6. TRAZODONE HCL [Concomitant]

REACTIONS (8)
  - AMMONIA INCREASED [None]
  - BALANCE DISORDER [None]
  - BLOOD ALKALINE PHOSPHATASE INCREASED [None]
  - BLOOD BILIRUBIN INCREASED [None]
  - DRUG TOXICITY [None]
  - HEPATIC FUNCTION ABNORMAL [None]
  - MENTAL STATUS CHANGES [None]
  - SOMNOLENCE [None]
